FAERS Safety Report 16664766 (Version 1)
Quarter: 2019Q3

REPORT INFORMATION
  Report Type: Spontaneous
  Country: DE (occurrence: DE)
  Receive Date: 20190803
  Receipt Date: 20190803
  Transmission Date: 20191004
  Serious: Yes (Hospitalization)
  Sender: FDA-Public Use
  Company Number: DE-DRREDDYS-GER/GER/19/0112450

PATIENT
  Age: 82 Year
  Sex: Female
  Weight: 86 kg

DRUGS (2)
  1. ALLOPURINOL. [Suspect]
     Active Substance: ALLOPURINOL
     Indication: PRODUCT USED FOR UNKNOWN INDICATION
     Dosage: DAILY DOSE: 300 MG MILLGRAM(S) EVERY DAYS
  2. VALSARTAN. [Concomitant]
     Active Substance: VALSARTAN
     Indication: PRODUCT USED FOR UNKNOWN INDICATION
     Dosage: DAILY DOSE: 320 MG MILLGRAM(S) EVERY DAYS 2 SEPARATED DOSES

REACTIONS (5)
  - Pyrexia [Recovering/Resolving]
  - Inflammation [Recovering/Resolving]
  - Hepatitis [Recovering/Resolving]
  - Rash generalised [Recovering/Resolving]
  - Acute kidney injury [Recovering/Resolving]

NARRATIVE: CASE EVENT DATE: 20190608
